FAERS Safety Report 7303006-8 (Version None)
Quarter: 2011Q1

REPORT INFORMATION
  Report Type: 
  Country: None (occurrence: None)
  Receive Date: 20110221
  Receipt Date: 20110210
  Transmission Date: 20110831
  Serious: Yes (Hospitalization)
  Sender: FDA-Public Use
  Company Number: US-BIOGENIDEC-2010BI023755

PATIENT
  Age: 60 Year
  Sex: Male

DRUGS (1)
  1. TYSABRI [Suspect]
     Indication: MULTIPLE SCLEROSIS
     Route: 042
     Dates: start: 20100503, end: 20100629

REACTIONS (5)
  - FALL [None]
  - BALANCE DISORDER [None]
  - FOOT FRACTURE [None]
  - ARTHROPATHY [None]
  - PNEUMONIA [None]
